FAERS Safety Report 4861916-5 (Version None)
Quarter: 2005Q4

REPORT INFORMATION
  Report Type: 
  Country: None (occurrence: None)
  Receive Date: 20051130
  Receipt Date: 20051010
  Transmission Date: 20060501
  Serious: No
  Sender: FDA-Public Use
  Company Number: MPS1-10447

PATIENT
  Age: 25 Month
  Sex: Male
  Weight: 30.5 kg

DRUGS (3)
  1. ALDURAZYME [Suspect]
     Indication: MUCOPOLYSACCHARIDOSIS I
     Dosage: 8.7 MG QWK IV
     Route: 042
     Dates: start: 20040225
  2. BENADRYL [Concomitant]
  3. ACETAMINOPHEN [Concomitant]

REACTIONS (2)
  - CATHETER RELATED INFECTION [None]
  - UPPER RESPIRATORY TRACT INFECTION [None]
